FAERS Safety Report 7710655-1 (Version None)
Quarter: 2011Q3

REPORT INFORMATION
  Report Type: 
  Country: None (occurrence: None)
  Receive Date: 20110825
  Receipt Date: 20110819
  Transmission Date: 20111222
  Serious: Yes (Hospitalization)
  Sender: FDA-Public Use
  Company Number: FR-PFIZER INC-2011191738

PATIENT
  Age: 60 Year
  Sex: Female

DRUGS (4)
  1. ETOPOSIDE [Concomitant]
     Dosage: 150 MG/M2, 1X/DAY
     Dates: start: 20080708, end: 20080712
  2. AMSACRINE [Concomitant]
     Dosage: 150 MG/M2, 1X/DAY
     Dates: start: 20080708, end: 20080712
  3. VORICONAZOLE [Suspect]
     Indication: BRONCHOPULMONARY ASPERGILLOSIS
     Dosage: UNK
     Dates: end: 20080807
  4. CYTARABINE [Suspect]
     Indication: ACUTE MYELOID LEUKAEMIA
     Dosage: 3000 MG/M2, 1X/DAY
     Route: 042
     Dates: start: 20080708, end: 20080708

REACTIONS (1)
  - CYTOLYTIC HEPATITIS [None]
